FAERS Safety Report 17401322 (Version 1)
Quarter: 2020Q1

REPORT INFORMATION
  Report Type: Spontaneous
  Country: US (occurrence: US)
  Receive Date: 20200211
  Receipt Date: 20200211
  Transmission Date: 20200409
  Serious: Yes (Death, Other)
  Sender: FDA-Public Use
  Company Number: US-CIPLA LTD.-2020US00924

PATIENT

DRUGS (5)
  1. CAFFEINE. [Suspect]
     Active Substance: CAFFEINE
     Dosage: UNK
     Route: 048
  2. PROPAFENONE. [Suspect]
     Active Substance: PROPAFENONE
     Dosage: UNK
     Route: 048
  3. LEVOTHYROXINE. [Suspect]
     Active Substance: LEVOTHYROXINE
     Dosage: UNK
     Route: 048
  4. LORAZEPAM. [Suspect]
     Active Substance: LORAZEPAM
     Dosage: UNK
     Route: 048
  5. LISINOPRIL. [Suspect]
     Active Substance: LISINOPRIL
     Dosage: UNK
     Route: 048

REACTIONS (2)
  - Suspected suicide [Fatal]
  - Toxicity to various agents [Fatal]
